FAERS Safety Report 15437852 (Version 2)
Quarter: 2018Q4

REPORT INFORMATION
  Report Type: Spontaneous
  Country: US (occurrence: US)
  Receive Date: 20180927
  Receipt Date: 20181212
  Transmission Date: 20190204
  Serious: Yes (Other)
  Sender: FDA-Public Use
  Company Number: US-VIIV HEALTHCARE LIMITED-US2018GSK175931

PATIENT
  Sex: Male
  Weight: 82.54 kg

DRUGS (1)
  1. JULUCA [Suspect]
     Active Substance: DOLUTEGRAVIR SODIUM\RILPIVIRINE HYDROCHLORIDE
     Indication: PRODUCT USED FOR UNKNOWN INDICATION
     Dosage: 1 DF, QD
     Route: 048
     Dates: start: 20180613, end: 20180905

REACTIONS (5)
  - Mobility decreased [Unknown]
  - Disturbance in attention [Unknown]
  - Depression [Unknown]
  - Pain in extremity [Unknown]
  - Mental impairment [Unknown]
